FAERS Safety Report 8977584 (Version 6)
Quarter: 2013Q3

REPORT INFORMATION
  Report Type: Spontaneous
  Country: US (occurrence: US)
  Receive Date: 20121220
  Receipt Date: 20130726
  Transmission Date: 20140515
  Serious: Yes (Hospitalization, Other)
  Sender: FDA-Public Use
  Company Number: US-GLAXOSMITHKLINE-A0989058A

PATIENT
  Age: 30 Year
  Sex: Female

DRUGS (7)
  1. FLOLAN [Suspect]
     Indication: PULMONARY ARTERIAL HYPERTENSION
     Dosage: 37.5NGKM CONTINUOUS
     Route: 065
     Dates: start: 20110926
  2. BOSENTAN [Concomitant]
     Dosage: 125MG TWICE PER DAY
  3. NOVOLIN [Concomitant]
     Dosage: 40UNIT THREE TIMES PER DAY
  4. REVATIO [Concomitant]
  5. TRACLEER [Concomitant]
  6. COUMADIN [Concomitant]
  7. LASIX [Concomitant]

REACTIONS (11)
  - Staphylococcal infection [Recovered/Resolved]
  - Catheter site discharge [Recovered/Resolved]
  - Catheter site infection [Recovered/Resolved]
  - Catheter site pruritus [Unknown]
  - Catheter site swelling [Unknown]
  - Catheter site erythema [Unknown]
  - Catheter site related reaction [Unknown]
  - Device related infection [Unknown]
  - Headache [Unknown]
  - Dyspnoea [Unknown]
  - Cardiac failure high output [Unknown]
